FAERS Safety Report 4946949-2 (Version None)
Quarter: 2006Q1

REPORT INFORMATION
  Report Type: 
  Country: None (occurrence: None)
  Receive Date: 20060317
  Receipt Date: 20051221
  Transmission Date: 20060701
  Serious: Yes (Hospitalization)
  Sender: FDA-Public Use
  Company Number: US-ROCHE-429453

PATIENT
  Age: 49 Year
  Sex: Male
  Weight: 77.1 kg

DRUGS (13)
  1. PEGASYS [Suspect]
     Route: 058
     Dates: start: 20050131, end: 20051109
  2. COPEGUS [Suspect]
     Route: 048
     Dates: start: 20050131, end: 20051109
  3. ASPIRIN [Concomitant]
  4. MEVACOR [Concomitant]
     Dosage: DAILY DOSE PRIOR ADMISSION WAS 40 MG.
  5. PROTONIX [Concomitant]
  6. LISINOPRIL [Concomitant]
     Dates: end: 20051125
  7. METOPROLOL [Concomitant]
  8. HYDRALAZINE [Concomitant]
     Dosage: PRIOR TO ADMISSION 25 MG TID, THEN 50 MG TID.
  9. NITROPASTE [Concomitant]
  10. HEPARIN [Concomitant]
  11. NIACIN [Concomitant]
  12. CLONIDINE [Concomitant]
  13. PROCRIT [Concomitant]
     Indication: ANAEMIA

REACTIONS (12)
  - ACUTE MYOCARDIAL INFARCTION [None]
  - ANAEMIA [None]
  - ANGINA PECTORIS [None]
  - COLONIC POLYP [None]
  - DIVERTICULUM [None]
  - DYSPEPSIA [None]
  - FATIGUE [None]
  - HIATUS HERNIA [None]
  - PLATELET COUNT DECREASED [None]
  - TREATMENT NONCOMPLIANCE [None]
  - WEIGHT DECREASED [None]
  - WHITE BLOOD CELL COUNT DECREASED [None]
